FAERS Safety Report 18313050 (Version 1)
Quarter: 2020Q3

REPORT INFORMATION
  Report Type: Spontaneous
  Country: FR (occurrence: FR)
  Receive Date: 20200925
  Receipt Date: 20200925
  Transmission Date: 20201103
  Serious: Yes (Other)
  Sender: FDA-Public Use
  Company Number: FR-TEVA-2020-FR-1830359

PATIENT
  Age: 74 Year
  Sex: Female

DRUGS (1)
  1. ACIDE ZOLEDRONIQUE ANHYDRE [Suspect]
     Active Substance: ZOLEDRONIC ACID
     Indication: OSTEOPOROSIS
     Route: 051
     Dates: start: 201908

REACTIONS (8)
  - Tooth disorder [Unknown]
  - Diarrhoea [Unknown]
  - Fatigue [Unknown]
  - Abdominal pain [Unknown]
  - Gingivitis [Unknown]
  - Gait disturbance [Unknown]
  - Pain in jaw [Unknown]
  - Pain [Unknown]

NARRATIVE: CASE EVENT DATE: 2020
